FAERS Safety Report 5568121-8 (Version None)
Quarter: 2007Q4

REPORT INFORMATION
  Report Type: 
  Country: None (occurrence: None)
  Receive Date: 20071218
  Receipt Date: 20071211
  Transmission Date: 20080405
  Serious: Yes (Hospitalization)
  Sender: FDA-Public Use
  Company Number: SPV1-2007-05148

PATIENT
  Age: 31 Year
  Sex: Female

DRUGS (4)
  1. PENTASA [Suspect]
     Indication: COLITIS
     Dosage: 4 G, 1X/DAY:QD, ORAL
     Route: 048
  2. PENTASA [Suspect]
     Indication: CROHN'S DISEASE
     Dosage: 4 G, 1X/DAY:QD, ORAL
     Route: 048
  3. COLESTID (COLESTID HYDROCHLORIDE) [Concomitant]
  4. ASACOL [Concomitant]

REACTIONS (22)
  - ABDOMINAL PAIN [None]
  - ANAEMIA [None]
  - ARTHRALGIA [None]
  - ATELECTASIS [None]
  - CHEST PAIN [None]
  - CONDITION AGGRAVATED [None]
  - CROHN'S DISEASE [None]
  - DIARRHOEA [None]
  - DYSPNOEA [None]
  - GASTRITIS [None]
  - HEADACHE [None]
  - HIATUS HERNIA [None]
  - MUSCULOSKELETAL STIFFNESS [None]
  - MYALGIA [None]
  - PAIN [None]
  - PLEURAL EFFUSION [None]
  - PLEURITIC PAIN [None]
  - PNEUMONITIS [None]
  - PYREXIA [None]
  - SERUM SICKNESS [None]
  - TACHYCARDIA [None]
  - THROMBOCYTOPENIA [None]
